FAERS Safety Report 20626518 (Version 1)
Quarter: 2022Q1

REPORT INFORMATION
  Report Type: Spontaneous
  Country: KR (occurrence: KR)
  Receive Date: 20220323
  Receipt Date: 20220323
  Transmission Date: 20220423
  Serious: Yes (Hospitalization, Other)
  Sender: FDA-Public Use
  Company Number: KR-ALVOGEN-2022-ALVOGEN-119152

PATIENT
  Age: 52 Year
  Sex: Male

DRUGS (4)
  1. PRIMAQUINE [Suspect]
     Active Substance: PRIMAQUINE
     Indication: Malaria
     Dosage: FOR 14 DAYS
  2. CHLOROQUINE [Suspect]
     Active Substance: CHLOROQUINE
     Indication: Malaria
     Dosage: TOTAL 21.7 MG/KG
  3. CAPECITABINE [Concomitant]
     Active Substance: CAPECITABINE
     Indication: Gastric cancer
  4. OXALIPLATIN [Concomitant]
     Active Substance: OXALIPLATIN
     Indication: Gastric cancer

REACTIONS (2)
  - Malaria relapse [Recovered/Resolved]
  - Therapy non-responder [Unknown]
